FAERS Safety Report 12897038 (Version 3)
Quarter: 2016Q4

REPORT INFORMATION
  Report Type: Spontaneous
  Country: SK (occurrence: SK)
  Receive Date: 20161031
  Receipt Date: 20161130
  Transmission Date: 20170207
  Serious: Yes (Death, Hospitalization, Other)
  Sender: FDA-Public Use
  Company Number: SK-PFIZER INC-2016493367

PATIENT
  Sex: Male

DRUGS (2)
  1. SUNITINIB MALATE. [Suspect]
     Active Substance: SUNITINIB MALATE
     Dosage: 37.5 MG, CYCLIC (2 WEEKS/1 WEEK PAUSE), REDUCED AFTER 6 YEARS
     Dates: start: 201602
  2. SUNITINIB MALATE. [Suspect]
     Active Substance: SUNITINIB MALATE
     Indication: METASTATIC RENAL CELL CARCINOMA
     Dosage: 50 MG, UNK
     Dates: start: 200912, end: 201601

REACTIONS (9)
  - Skin toxicity [Recovered/Resolved]
  - Leukopenia [Recovered/Resolved]
  - Anal abscess [Recovered/Resolved]
  - Neoplasm progression [Fatal]
  - Acute kidney injury [Unknown]
  - Diarrhoea [Recovered/Resolved]
  - Thrombocytopenia [Recovered/Resolved]
  - Hypertension [Recovered/Resolved]
  - Hypothyroidism [Recovered/Resolved]

NARRATIVE: CASE EVENT DATE: 201603
